FAERS Safety Report 8117839-1 (Version None)
Quarter: 2012Q1

REPORT INFORMATION
  Report Type: 
  Country: None (occurrence: None)
  Receive Date: 20120202
  Receipt Date: 20120120
  Transmission Date: 20120608
  Serious: Yes (Other)
  Sender: FDA-Public Use
  Company Number: 2012010120

PATIENT
  Age: 57 Year
  Sex: Male

DRUGS (2)
  1. NAPROXEN (ALEVE) [Concomitant]
  2. SOMA [Suspect]
     Indication: BACK PAIN
     Dosage: (250 MG), ORAL
     Route: 048
     Dates: start: 20120120, end: 20120120

REACTIONS (3)
  - SPEECH DISORDER [None]
  - HYPERSENSITIVITY [None]
  - DYSPHONIA [None]
